FAERS Safety Report 8277202-X (Version None)
Quarter: 2012Q2

REPORT INFORMATION
  Report Type: 
  Country: None (occurrence: None)
  Receive Date: 20120412
  Receipt Date: 20120405
  Transmission Date: 20120825
  Serious: Yes (Hospitalization)
  Sender: FDA-Public Use
  Company Number: US-GLAXOSMITHKLINE-A0794431A

PATIENT
  Age: 37 Year
  Sex: Female
  Weight: 81.4 kg

DRUGS (4)
  1. PREVACID [Concomitant]
  2. AVANDIA [Suspect]
     Indication: DIABETES MELLITUS
     Dosage: 8MG PER DAY
     Route: 048
     Dates: start: 20001020, end: 20030701
  3. INSULIN [Concomitant]
  4. LIPITOR [Concomitant]

REACTIONS (5)
  - ARRHYTHMIA [None]
  - ATRIAL FIBRILLATION [None]
  - CARDIAC DISORDER [None]
  - HEPATOMEGALY [None]
  - GASTRIC DISORDER [None]
